FAERS Safety Report 4410570-5 (Version None)
Quarter: 2004Q3

REPORT INFORMATION
  Report Type: 
  Country: None (occurrence: None)
  Receive Date: 20040726
  Receipt Date: 20040721
  Transmission Date: 20050211
  Serious: Yes (Death)
  Sender: FDA-Public Use
  Company Number: JAUSA6068

PATIENT
  Age: 9 Year
  Sex: Female
  Weight: 33.8 kg

DRUGS (9)
  1. DURAGESIC [Suspect]
     Indication: POST PROCEDURAL PAIN
     Dosage: 25 UG/HR, TRANSDERMAL
     Route: 062
     Dates: start: 19910506, end: 19910506
  2. ALFENTANIL [Suspect]
     Indication: POST PROCEDURAL PAIN
     Dosage: 250 UG, INJECTION
     Dates: start: 19910506, end: 19910506
  3. NITROUS-OXIDE (NITROUS OXIDE) [Concomitant]
  4. VALIUM (DIAZEPAM) INJECTION [Concomitant]
  5. ATROPINE [Concomitant]
  6. PHENERGAN [Concomitant]
  7. FORANE [Concomitant]
  8. ANECTINE [Concomitant]
  9. DEMEROL [Concomitant]

REACTIONS (3)
  - FEELING COLD [None]
  - INJURY ASPHYXIATION [None]
  - PALLOR [None]
